FAERS Safety Report 17763046 (Version 2)
Quarter: 2020Q2

REPORT INFORMATION
  Report Type: Spontaneous
  Country: ES (occurrence: ES)
  Receive Date: 20200508
  Receipt Date: 20200512
  Transmission Date: 20200714
  Serious: Yes (Hospitalization, Disabling, Other)
  Sender: FDA-Public Use
  Company Number: ES-JNJFOC-20200435231

PATIENT
  Age: 66 Year
  Sex: Female

DRUGS (4)
  1. XEPLION [Suspect]
     Active Substance: PALIPERIDONE PALMITATE
     Indication: DEPRESSION
     Dosage: HALF OF 50MG INSTEAD OF 25MG
     Route: 030
     Dates: start: 201911, end: 201911
  2. XEPLION [Suspect]
     Active Substance: PALIPERIDONE PALMITATE
     Dosage: HALF OF 50MG INSTEAD OF 25MG
     Route: 030
     Dates: start: 201912, end: 201912
  3. XEPLION [Suspect]
     Active Substance: PALIPERIDONE PALMITATE
     Dosage: HALF OF 50MG INSTEAD OF 25MG
     Route: 030
     Dates: start: 202002, end: 202002
  4. XEPLION [Suspect]
     Active Substance: PALIPERIDONE PALMITATE
     Dosage: HALF OF 50MG INSTEAD OF 25MG
     Route: 030
     Dates: start: 202001, end: 202001

REACTIONS (14)
  - Hypertension [Unknown]
  - Condition aggravated [Unknown]
  - Inappropriate schedule of product administration [Unknown]
  - Conjunctivitis [Unknown]
  - Respiratory tract infection [Unknown]
  - Dizziness [Unknown]
  - Balance disorder [Unknown]
  - Vision blurred [Unknown]
  - Vertigo [Unknown]
  - Urinary tract infection [Unknown]
  - Muscle swelling [Unknown]
  - Bronchitis [Unknown]
  - Off label use [Unknown]
  - Sinusitis [Unknown]

NARRATIVE: CASE EVENT DATE: 201911
